FAERS Safety Report 4811512-0 (Version None)
Quarter: 2005Q4

REPORT INFORMATION
  Report Type: 
  Country: None (occurrence: None)
  Receive Date: 20051027
  Receipt Date: 20051018
  Transmission Date: 20060501
  Serious: Yes (Other)
  Sender: FDA-Public Use
  Company Number: GB-ABBOTT-05P-167-0314858-00

PATIENT
  Sex: Female

DRUGS (1)
  1. ERYTHROPED A [Suspect]
     Indication: ACNE
     Route: 048

REACTIONS (1)
  - TOOTH DISCOLOURATION [None]
